FAERS Safety Report 20059779 (Version 2)
Quarter: 2021Q4

REPORT INFORMATION
  Report Type: Spontaneous
  Country: JP (occurrence: JP)
  Receive Date: 20211111
  Receipt Date: 20211119
  Transmission Date: 20220303
  Serious: Yes (Life-Threatening, Hospitalization, Other)
  Sender: FDA-Public Use
  Company Number: JP-MSD-M2021-14837

PATIENT
  Age: 85 Year
  Sex: Male
  Weight: 42 kg

DRUGS (10)
  1. BRIDION [Suspect]
     Active Substance: SUGAMMADEX
     Indication: Neuromuscular blockade reversal
     Dosage: 120 MILLIGRAM
     Route: 042
     Dates: start: 20210527, end: 20210527
  2. ROCURONIUM BROMIDE [Suspect]
     Active Substance: ROCURONIUM BROMIDE
     Indication: Hypotonia
     Dosage: 100 MILLIGRAM
     Route: 042
     Dates: start: 20210527, end: 20210527
  3. FENTANYL CITRATE [Suspect]
     Active Substance: FENTANYL CITRATE
     Indication: Analgesic therapy
     Dosage: 200 MICROGRAM
     Route: 042
     Dates: start: 20210527, end: 20210527
  4. ULTIVA [Concomitant]
     Active Substance: REMIFENTANIL HYDROCHLORIDE
     Indication: Analgesic therapy
     Dosage: 0.23 MILLIGRAM
     Route: 042
     Dates: start: 20210527, end: 20210527
  5. XYLOCAINE [Concomitant]
     Active Substance: LIDOCAINE HYDROCHLORIDE
     Indication: Analgesic therapy
     Dosage: 5 MILLILITER
     Route: 008
     Dates: start: 20210527, end: 20210527
  6. LEVOBUPIVACAINE HYDROCHLORIDE [Concomitant]
     Active Substance: LEVOBUPIVACAINE HYDROCHLORIDE
     Indication: Analgesic therapy
     Dosage: 8 MILLILITER
     Route: 008
     Dates: start: 20210527, end: 20210527
  7. PROPOFOL [Concomitant]
     Active Substance: PROPOFOL
     Indication: Sedation
     Dosage: 40 MILLIGRAM
     Route: 042
     Dates: start: 20210527, end: 20210527
  8. SEVOFLURANE [Concomitant]
     Active Substance: SEVOFLURANE
     Indication: Sedation
     Dosage: 21.73 MILLILITER
     Dates: start: 20210527, end: 20210527
  9. NOREPINEPHRINE [Concomitant]
     Active Substance: NOREPINEPHRINE
     Indication: Blood pressure management
     Dosage: 0.45 MILLIGRAM
     Route: 042
     Dates: start: 20210527, end: 20210527
  10. PHENYLEPHRINE HYDROCHLORIDE [Concomitant]
     Active Substance: PHENYLEPHRINE HYDROCHLORIDE
     Indication: Blood pressure management
     Dosage: 0.6 MILLIGRAM
     Route: 042
     Dates: start: 20210527, end: 20210527

REACTIONS (4)
  - Hypoxia [Recovered/Resolved]
  - Recurrence of neuromuscular blockade [Recovered/Resolved]
  - Hypothermia [Unknown]
  - Respiratory depression [Unknown]

NARRATIVE: CASE EVENT DATE: 20210527
